FAERS Safety Report 5840128-2 (Version None)
Quarter: 2008Q3

REPORT INFORMATION
  Report Type: 
  Country: None (occurrence: None)
  Receive Date: 20080807
  Receipt Date: 20080807
  Transmission Date: 20090109
  Serious: No
  Sender: FDA-Public Use
  Company Number: None

PATIENT
  Sex: Female

DRUGS (1)
  1. AMLODIPINE [Suspect]
     Indication: HYPERTENSION
     Dosage: 5 MG 1 QD
     Dates: start: 20080101, end: 20080401

REACTIONS (5)
  - ERYTHEMA [None]
  - MALAISE [None]
  - NAUSEA [None]
  - PRURITUS [None]
  - SENSATION OF FOREIGN BODY [None]
